FAERS Safety Report 11904082 (Version 1)
Quarter: 2016Q1

REPORT INFORMATION
  Report Type: Spontaneous
  Country: GB (occurrence: GB)
  Receive Date: 20160108
  Receipt Date: 20160108
  Transmission Date: 20160526
  Serious: Yes (Other)
  Sender: FDA-Public Use
  Company Number: GB-ABBVIE-16P-167-1534000-00

PATIENT
  Age: 30 Year
  Sex: Male
  Weight: 70 kg

DRUGS (2)
  1. PREDNISOLONE. [Suspect]
     Active Substance: PREDNISOLONE
     Indication: LOWER RESPIRATORY TRACT INFECTION
     Route: 048
     Dates: start: 20150610
  2. CLARITHROMYCIN. [Suspect]
     Active Substance: CLARITHROMYCIN
     Indication: LOWER RESPIRATORY TRACT INFECTION
     Route: 048
     Dates: start: 20150610, end: 20150620

REACTIONS (6)
  - Abdominal distension [Unknown]
  - Pearly penile papules [Not Recovered/Not Resolved]
  - Dysuria [Unknown]
  - Balanitis candida [Not Recovered/Not Resolved]
  - Abdominal pain [Unknown]
  - Genital rash [Unknown]

NARRATIVE: CASE EVENT DATE: 201506
